FAERS Safety Report 6768758-4 (Version None)
Quarter: 2010Q2

REPORT INFORMATION
  Report Type: 
  Country: None (occurrence: None)
  Receive Date: 20100614
  Receipt Date: 20100604
  Transmission Date: 20101027
  Serious: Yes (Death, Other)
  Sender: FDA-Public Use
  Company Number: US-AMGEN-QUU416530

PATIENT
  Sex: Male

DRUGS (2)
  1. NPLATE [Suspect]
     Indication: IDIOPATHIC THROMBOCYTOPENIC PURPURA
     Dates: start: 20090430, end: 20090528
  2. CORTICOSTEROIDS [Concomitant]
     Dates: start: 20090406

REACTIONS (2)
  - DRUG INEFFECTIVE [None]
  - MYELODYSPLASTIC SYNDROME [None]
